FAERS Safety Report 13470145 (Version 1)
Quarter: 2017Q2

REPORT INFORMATION
  Report Type: Spontaneous
  Country: CH (occurrence: CH)
  Receive Date: 20170423
  Receipt Date: 20170423
  Transmission Date: 20170830
  Serious: Yes (Hospitalization, Other)
  Sender: FDA-Public Use
  Company Number: CH-MYLANLABS-2017M1023993

PATIENT

DRUGS (9)
  1. ECOFENAC [Interacting]
     Active Substance: DICLOFENAC SODIUM
     Indication: ARTHRALGIA
     Dosage: UNK
  2. CLOPIDOGREL ACINO [Interacting]
     Active Substance: CLOPIDOGREL BESILATE
     Indication: ISCHAEMIC STROKE
     Dosage: 75 MG, QD
     Route: 048
  3. METO ZEROK [Concomitant]
     Active Substance: METOPROLOL SUCCINATE
     Indication: PRODUCT USED FOR UNKNOWN INDICATION
     Dosage: 25 MG, BID
  4. CRESTOR [Concomitant]
     Active Substance: ROSUVASTATIN CALCIUM
     Indication: PRODUCT USED FOR UNKNOWN INDICATION
     Dosage: 5 MG, QD
  5. BRUFEN? [Suspect]
     Active Substance: IBUPROFEN
     Indication: ARTHRALGIA
     Dosage: 800 MG, UNK
     Route: 048
  6. COVERSUM N COMBI [Concomitant]
     Indication: PRODUCT USED FOR UNKNOWN INDICATION
     Dosage: UNK, QD
  7. MAGNESIUM DIASPORAL (MAGNESIUM CITRATE) [Concomitant]
     Active Substance: MAGNESIUM CITRATE
     Indication: PRODUCT USED FOR UNKNOWN INDICATION
     Dosage: 300 MG, QD
  8. CALCIMAGON D3 [Concomitant]
     Active Substance: CALCIUM\CHOLECALCIFEROL
     Indication: PRODUCT USED FOR UNKNOWN INDICATION
     Dosage: 500 MG, QD
  9. PADMED CIRCOSAN [Concomitant]
     Active Substance: CALCIUM SULFATE\HERBALS
     Indication: PRODUCT USED FOR UNKNOWN INDICATION
     Dosage: UNK, QD

REACTIONS (10)
  - Melaena [Recovered/Resolved]
  - Asthenia [Unknown]
  - Conjunctival pallor [Unknown]
  - Drug interaction [Unknown]
  - Gastrointestinal haemorrhage [Recovering/Resolving]
  - Dyspnoea [Unknown]
  - Duodenal ulcer [Recovering/Resolving]
  - Fatigue [Unknown]
  - Dizziness [Unknown]
  - Gait disturbance [Unknown]

NARRATIVE: CASE EVENT DATE: 201612
